FAERS Safety Report 4349014-0 (Version None)
Quarter: 2004Q2

REPORT INFORMATION
  Report Type: 
  Country: None (occurrence: None)
  Receive Date: 20040427
  Receipt Date: 20040427
  Transmission Date: 20050107
  Serious: Yes (Other)
  Sender: FDA-Public Use
  Company Number: None

PATIENT
  Age: 10 Year
  Sex: Male

DRUGS (1)
  1. DILANTIN [Suspect]
     Indication: CONVULSION
     Dosage: 100 MG 3 TIMES A DAY
     Dates: start: 19940401, end: 19950201

REACTIONS (3)
  - BRAIN NEOPLASM [None]
  - RHINORRHOEA [None]
  - SNEEZING [None]
